FAERS Safety Report 8577749-2 (Version None)
Quarter: 2012Q3

REPORT INFORMATION
  Report Type: 
  Country: None (occurrence: None)
  Receive Date: 20120808
  Receipt Date: 20120802
  Transmission Date: 20120928
  Serious: Yes (Hospitalization)
  Sender: FDA-Public Use
  Company Number: SE-BRISTOL-MYERS SQUIBB COMPANY-16662983

PATIENT
  Age: 62 Year
  Sex: Female

DRUGS (2)
  1. DALTEPARIN SODIUM [Concomitant]
     Dates: start: 20120420
  2. IPILIMUMAB [Suspect]
     Indication: MALIGNANT MELANOMA
     Dosage: 3MG/KG OR 10MG/KG
     Route: 042
     Dates: start: 20120528, end: 20120528

REACTIONS (1)
  - VIRAL INFECTION [None]
